FAERS Safety Report 5469733-2 (Version None)
Quarter: 2007Q3

REPORT INFORMATION
  Report Type: 
  Country: None (occurrence: None)
  Receive Date: 20070927
  Receipt Date: 20070312
  Transmission Date: 20080115
  Serious: No
  Sender: FDA-Public Use
  Company Number: US-AMGEN-US148616

PATIENT
  Sex: Female

DRUGS (2)
  1. NEUPOGEN [Suspect]
     Indication: NEUTROPENIA
     Dates: start: 20050601
  2. PEGASYS [Concomitant]
     Route: 065

REACTIONS (4)
  - ASTHENIA [None]
  - BACK PAIN [None]
  - NAUSEA [None]
  - STOMACH DISCOMFORT [None]
